FAERS Safety Report 17567759 (Version 4)
Quarter: 2020Q3

REPORT INFORMATION
  Report Type: Report from Study
  Country: US (occurrence: US)
  Receive Date: 20200320
  Receipt Date: 20200702
  Transmission Date: 20201102
  Serious: Yes (Hospitalization)
  Sender: FDA-Public Use
  Company Number: US-ACTELION-A-US2019-193015

PATIENT
  Age: 56 Year
  Sex: Female
  Weight: 88.44 kg

DRUGS (4)
  1. ADEMPAS [Suspect]
     Active Substance: RIOCIGUAT
     Dosage: 0.5 MG, TID
     Route: 048
     Dates: start: 20190714
  2. OPSUMIT [Suspect]
     Active Substance: MACITENTAN
     Indication: PULMONARY ARTERIAL HYPERTENSION
     Dosage: 10 MG, QD
     Route: 048
  3. ADEMPAS [Suspect]
     Active Substance: RIOCIGUAT
     Indication: PRODUCT USED FOR UNKNOWN INDICATION
     Dosage: 1 MG, TID
     Route: 065
     Dates: start: 20190713, end: 20190713
  4. UPTRAVI [Suspect]
     Active Substance: SELEXIPAG
     Indication: PULMONARY ARTERIAL HYPERTENSION
     Dosage: 1600 MCG, BID
     Route: 048

REACTIONS (17)
  - Pulmonary arterial hypertension [Unknown]
  - Condition aggravated [Unknown]
  - Unevaluable event [Unknown]
  - Dyspnoea [Unknown]
  - Right ventricular failure [Recovering/Resolving]
  - Therapy change [Unknown]
  - Joint swelling [Unknown]
  - Hospitalisation [Unknown]
  - Dizziness [Recovered/Resolved]
  - Hypotension [Unknown]
  - Irregular breathing [Unknown]
  - Nausea [Recovered/Resolved]
  - Peripheral swelling [Recovering/Resolving]
  - Disease progression [Unknown]
  - Chest pain [Unknown]
  - Product dose omission issue [Unknown]
  - Drug ineffective [Unknown]

NARRATIVE: CASE EVENT DATE: 20190713
